FAERS Safety Report 5104777-1 (Version None)
Quarter: 2006Q3

REPORT INFORMATION
  Report Type: 
  Country: None (occurrence: None)
  Receive Date: 20060914
  Receipt Date: 20050930
  Transmission Date: 20061208
  Serious: Yes (Other)
  Sender: FDA-Public Use
  Company Number: US-ROCHE-419812

PATIENT
  Sex: Male
  Weight: 2.7 kg

DRUGS (7)
  1. COPEGUS [Suspect]
     Indication: DRUG USE FOR UNKNOWN INDICATION
     Dates: start: 20050112, end: 20050112
  2. PEGASYS [Suspect]
     Indication: DRUG USE FOR UNKNOWN INDICATION
     Dates: start: 20050109, end: 20050109
  3. TYLENOL [Concomitant]
     Indication: PAIN
  4. PRENATAL VITAMINS [Concomitant]
     Indication: PREGNANCY
  5. CALCIUM GLUCONATE [Concomitant]
     Indication: PREGNANCY
     Dates: start: 20050128
  6. IRON SULPHATE [Concomitant]
     Dates: start: 20050331
  7. TYLENOL W/ CODEINE NO. 3 [Concomitant]
     Indication: PAIN
     Dosage: INDICATION REPORTED AS PAIN, S/P ERCP.
     Dates: start: 20050531

REACTIONS (4)
  - ANAEMIA [None]
  - DRUG EXPOSURE DURING PREGNANCY [None]
  - PREMATURE LABOUR [None]
  - PREMATURE SEPARATION OF PLACENTA [None]
